FAERS Safety Report 9783626 (Version 1)
Quarter: 2013Q4

REPORT INFORMATION
  Report Type: Spontaneous
  Country: AU (occurrence: None)
  Receive Date: 20131223
  Receipt Date: 20131223
  Transmission Date: 20140711
  Serious: Yes (Hospitalization)
  Sender: FDA-Public Use
  Company Number: 2013-003990

PATIENT
  Age: 71 Year
  Sex: Female

DRUGS (4)
  1. ACTONEL (RISEDRONATE SODIUM) TABLET, 150MG [Suspect]
     Route: 048
     Dates: start: 20120705
  2. VITAMIN D [Concomitant]
  3. CALTRATE /00751519/ (CALCIUM CARBONATE [Concomitant]
  4. PROLIA (DENOSUMAB) [Concomitant]

REACTIONS (3)
  - Chills [None]
  - Body temperature increased [None]
  - Vomiting [None]
